APPROVED DRUG PRODUCT: ACETAMINOPHEN AND PENTAZOCINE HYDROCHLORIDE
Active Ingredient: ACETAMINOPHEN; PENTAZOCINE HYDROCHLORIDE
Strength: 650MG;EQ 25MG BASE
Dosage Form/Route: TABLET;ORAL
Application: A076202 | Product #001
Applicant: GAVIS PHARMACEUTICALS LLC
Approved: Aug 2, 2002 | RLD: No | RS: No | Type: DISCN